FAERS Safety Report 17095136 (Version 1)
Quarter: 2019Q4

REPORT INFORMATION
  Report Type: Spontaneous
  Country: US (occurrence: US)
  Receive Date: 20191101
  Receipt Date: 20191101
  Transmission Date: 20200122
  Serious: Yes (Hospitalization)
  Sender: FDA-Public Use
  Company Number: None

PATIENT
  Age: 57 Year
  Sex: Female
  Weight: 74.5 kg

DRUGS (3)
  1. ELOXATIN [Suspect]
     Active Substance: OXALIPLATIN
     Dates: end: 20181204
  2. 5-FLUOROURACIL (5-FU) (19893) [Suspect]
     Active Substance: FLUOROURACIL
     Dates: end: 20181204
  3. LEUCOVORIN CALCIUM. [Suspect]
     Active Substance: LEUCOVORIN CALCIUM
     Dates: end: 20181204

REACTIONS (18)
  - Blood alkaline phosphatase [None]
  - Leukocytosis [None]
  - Dizziness [None]
  - Hypocalcaemia [None]
  - Electrolyte imbalance [None]
  - Blood sodium decreased [None]
  - Red blood cells urine [None]
  - Hyponatraemia [None]
  - Gastrointestinal stoma complication [None]
  - Urinary tract infection [None]
  - Infection [None]
  - Renal failure [None]
  - Urine leukocyte esterase positive [None]
  - Urinary retention [None]
  - Dehydration [None]
  - Diplopia [None]
  - Asthenia [None]
  - Electrocardiogram QT prolonged [None]

NARRATIVE: CASE EVENT DATE: 20190520
